FAERS Safety Report 24665345 (Version 1)
Quarter: 2024Q4

REPORT INFORMATION
  Report Type: Spontaneous
  Country: ES (occurrence: ES)
  Receive Date: 20241126
  Receipt Date: 20241126
  Transmission Date: 20250114
  Serious: Yes (Other)
  Sender: OTSUKA
  Company Number: ES-OTSUKA-2024_030962

PATIENT
  Age: 45 Year
  Sex: Female

DRUGS (10)
  1. TOLVAPTAN [Suspect]
     Active Substance: TOLVAPTAN
     Indication: Congenital cystic kidney disease
     Dosage: 90 MG, QD (EVERY 12 H)
     Route: 065
     Dates: start: 201811
  2. TOLVAPTAN [Suspect]
     Active Substance: TOLVAPTAN
     Indication: Polycystic liver disease
     Dosage: 30 MG, QD (EVERY 12 H)
     Route: 065
     Dates: start: 201811
  3. TOLVAPTAN [Suspect]
     Active Substance: TOLVAPTAN
     Dosage: 45 MG, QD (EVERY 12 H)
     Route: 065
     Dates: start: 201806
  4. TOLVAPTAN [Suspect]
     Active Substance: TOLVAPTAN
     Dosage: 15 MG, QD (EVERY 12 H)
     Route: 065
     Dates: start: 201806
  5. TOLVAPTAN [Suspect]
     Active Substance: TOLVAPTAN
     Dosage: 60 MG, QD (EVERY 12 H)
     Route: 065
     Dates: start: 201809
  6. TOLVAPTAN [Suspect]
     Active Substance: TOLVAPTAN
     Dosage: 30 MG, QD (EVERY 12 H)
     Route: 065
     Dates: start: 201809
  7. TOLVAPTAN [Suspect]
     Active Substance: TOLVAPTAN
     Dosage: 45 MG (LOW DOSE)
     Route: 065
     Dates: start: 201905
  8. TOLVAPTAN [Suspect]
     Active Substance: TOLVAPTAN
     Dosage: 15 MG (LOW DOSE)
     Route: 065
     Dates: start: 2019
  9. TOLVAPTAN [Suspect]
     Active Substance: TOLVAPTAN
     Dosage: 30 MG (REDUCED DOSE)
     Route: 065
     Dates: start: 201908
  10. TOLVAPTAN [Suspect]
     Active Substance: TOLVAPTAN
     Dosage: 15 MG (REDUCED DOSE)
     Route: 065
     Dates: start: 201908

REACTIONS (2)
  - Toxic skin eruption [Unknown]
  - Product use in unapproved indication [Unknown]

NARRATIVE: CASE EVENT DATE: 20180601
